FAERS Safety Report 19362831 (Version 11)
Quarter: 2021Q3

REPORT INFORMATION
  Report Type: Report from Study
  Country: CA (occurrence: CA)
  Receive Date: 20210602
  Receipt Date: 20210917
  Transmission Date: 20211014
  Serious: Yes (Hospitalization)
  Sender: FDA-Public Use
  Company Number: CA-EISAI MEDICAL RESEARCH-EC-2021-093770

PATIENT
  Age: 69 Year
  Sex: Female
  Weight: 47.2 kg

DRUGS (31)
  1. LENVATINIB [Suspect]
     Active Substance: LENVATINIB
     Indication: NON-SMALL CELL LUNG CANCER METASTATIC
     Route: 048
     Dates: start: 20201020, end: 20210621
  2. LENVATINIB [Suspect]
     Active Substance: LENVATINIB
     Route: 048
     Dates: start: 20210622
  3. PEMBROLIZUMAB. [Suspect]
     Active Substance: PEMBROLIZUMAB
     Indication: NON-SMALL CELL LUNG CANCER METASTATIC
     Route: 041
     Dates: start: 20201020, end: 20210408
  4. CARBOPLATIN. [Concomitant]
     Active Substance: CARBOPLATIN
     Dates: start: 20201020, end: 20210112
  5. CALCIUM CITRATE/VITAMIN D [Concomitant]
     Active Substance: CALCIUM CITRATE\VITAMIN D
     Dates: start: 20150101
  6. LOPERAMIDE [Concomitant]
     Active Substance: LOPERAMIDE
     Dates: start: 20201027
  7. ONDANSETRON [Concomitant]
     Active Substance: ONDANSETRON
     Dates: start: 20210208
  8. SODIUM CHLORIDE. [Concomitant]
     Active Substance: SODIUM CHLORIDE
     Dates: start: 20210501
  9. JAMIESON PROBIOTIC [Concomitant]
     Dates: start: 20150101
  10. LEVOTHYROXINE SODIUM. [Concomitant]
     Active Substance: LEVOTHYROXINE SODIUM
     Dates: start: 20210427
  11. SODIUM CHLORIDE. [Concomitant]
     Active Substance: SODIUM CHLORIDE
     Dates: start: 20210526, end: 20210526
  12. DIPHENHYDRAMINE HYDROCHLORIDE;HYDROCORTISONE;NYSTATIN;TETRACYCLINE [Concomitant]
     Dates: start: 20201130
  13. PEMETREXED. [Suspect]
     Active Substance: PEMETREXED
     Route: 041
     Dates: start: 20210622
  14. SYSTANE (HYPROMELLOSE 2910 (4000 MPA.S)) [Concomitant]
     Active Substance: HYPROMELLOSE 2910 (4000 MPA.S)
     Dates: start: 20210120
  15. ACTONEL [Concomitant]
     Active Substance: RISEDRONATE SODIUM
     Route: 030
     Dates: start: 20150101
  16. PEMETREXED. [Suspect]
     Active Substance: PEMETREXED
     Route: 041
     Dates: start: 20210504, end: 20210504
  17. ONE A DAY ESSENTIAL [VITAMINS NOS] [Concomitant]
     Dates: start: 20150101
  18. PROCHLORPERAZINE. [Concomitant]
     Active Substance: PROCHLORPERAZINE
     Dates: start: 20201020
  19. SENOKOT [Concomitant]
     Active Substance: SENNOSIDES
     Dates: start: 20201221
  20. FOLIC ACID. [Concomitant]
     Active Substance: FOLIC ACID
     Dates: start: 20210111
  21. PEMBROLIZUMAB. [Suspect]
     Active Substance: PEMBROLIZUMAB
     Route: 041
     Dates: start: 20210504, end: 20210504
  22. PEMBROLIZUMAB. [Suspect]
     Active Substance: PEMBROLIZUMAB
     Route: 041
     Dates: start: 20210622
  23. PEMETREXED. [Suspect]
     Active Substance: PEMETREXED
     Indication: NON-SMALL CELL LUNG CANCER METASTATIC
     Route: 041
     Dates: start: 20201020, end: 20210408
  24. TYLENOL [Concomitant]
     Active Substance: ACETAMINOPHEN
     Dates: start: 20200723
  25. HYDROCODONE [Concomitant]
     Active Substance: HYDROCODONE
     Dates: start: 20200723
  26. ESTER C + BIOFLAVONOIDS [Concomitant]
     Dates: start: 20150101
  27. ALEVE [Concomitant]
     Active Substance: NAPROXEN SODIUM
     Dates: start: 20201026
  28. MORPHINE [Concomitant]
     Active Substance: MORPHINE
     Dates: start: 20201111
  29. OMNARIS [Concomitant]
     Active Substance: CICLESONIDE
     Dates: start: 20201214
  30. AMLODIPINE [Concomitant]
     Active Substance: AMLODIPINE BESYLATE
     Dates: start: 20210225
  31. DEXAMETHASONE. [Concomitant]
     Active Substance: DEXAMETHASONE
     Dates: start: 20210503, end: 20210505

REACTIONS (1)
  - Colitis [Recovered/Resolved]

NARRATIVE: CASE EVENT DATE: 20210518
